FAERS Safety Report 19070327 (Version 3)
Quarter: 2021Q2

REPORT INFORMATION
  Report Type: Spontaneous
  Country: JP (occurrence: JP)
  Receive Date: 20210329
  Receipt Date: 20210408
  Transmission Date: 20210717
  Serious: Yes (Death, Hospitalization, Other)
  Sender: FDA-Public Use
  Company Number: JP-SAKK-2021SA014465AA

PATIENT
  Age: 75 Year
  Sex: Male

DRUGS (4)
  1. METHOTREXATE. [Suspect]
     Active Substance: METHOTREXATE
     Indication: RHEUMATOID ARTHRITIS
     Dosage: 10 MG, BID
     Route: 048
     Dates: start: 20090415, end: 20210116
  2. PREDNISOLONE. [Suspect]
     Active Substance: PREDNISOLONE
     Indication: RHEUMATOID ARTHRITIS
     Dosage: 8 MG, BID
     Route: 048
     Dates: start: 20090415, end: 20210116
  3. KEVZARA [Suspect]
     Active Substance: SARILUMAB
     Indication: RHEUMATOID ARTHRITIS
     Dosage: UNK, QOW
     Route: 058
     Dates: start: 20200924
  4. KEVZARA [Suspect]
     Active Substance: SARILUMAB
     Dosage: UNK, QOW
     Route: 058
     Dates: end: 20210126

REACTIONS (2)
  - Pneumonia [Fatal]
  - Rash [Recovered/Resolved]

NARRATIVE: CASE EVENT DATE: 202010
